FAERS Safety Report 4609985-1 (Version None)
Quarter: 2005Q1

REPORT INFORMATION
  Report Type: 
  Country: None (occurrence: None)
  Receive Date: 20050315
  Receipt Date: 20050302
  Transmission Date: 20050727
  Serious: Yes (Death, Life-Threatening)
  Sender: FDA-Public Use
  Company Number: HQWYE765202MAR05

PATIENT
  Age: 82 Year
  Sex: Male

DRUGS (8)
  1. CORDARONE [Suspect]
     Dosage: 200 MG 1X PER 1 DAY
     Route: 048
     Dates: start: 20041104, end: 20050124
  2. COLCHIMAX (COLCHICINE/DICYCLOVERINE HYDROCHLORIDE) [Suspect]
     Indication: GOUTY ARTHRITIS
     Dosage: SEE IMAGE
     Route: 048
     Dates: start: 20050118, end: 20050118
  3. COLCHIMAX (COLCHICINE/DICYCLOVERINE HYDROCHLORIDE) [Suspect]
     Indication: GOUTY ARTHRITIS
     Dosage: SEE IMAGE
     Route: 048
     Dates: start: 20040119, end: 20050120
  4. COLCHIMAX (COLCHICINE/DICYCLOVERINE HYDROCHLORIDE) [Suspect]
     Indication: GOUTY ARTHRITIS
     Dosage: SEE IMAGE
     Route: 048
     Dates: start: 20050121, end: 20050124
  5. FLAGYL [Suspect]
     Dosage: 500 MG 3X PER 1 DAY
     Route: 048
     Dates: start: 20050114, end: 20050124
  6. MODOPAR (BENSERAZIDE HYDROCHLORIDE/LEVODOPA,  ) [Suspect]
     Dosage: 62.5 MG X4 PER 1 DAY
     Route: 048
     Dates: start: 20041104, end: 20050124
  7. PLAVIX [Suspect]
     Dosage: 75 MG 1X PER 1 DAY
     Route: 048
     Dates: start: 20051104, end: 20050105
  8. CLARITHROMYCIN [Suspect]
     Dosage: 500 MG 2X PER 1 DAY
     Route: 048
     Dates: start: 20050101, end: 20050124

REACTIONS (4)
  - AGRANULOCYTOSIS [None]
  - LUNG DISORDER [None]
  - LUNG INFECTION [None]
  - THROMBOCYTOPENIA [None]
